FAERS Safety Report 13486704 (Version 1)
Quarter: 2017Q2

REPORT INFORMATION
  Report Type: Report from Study
  Country: US (occurrence: US)
  Receive Date: 20170426
  Receipt Date: 20170426
  Transmission Date: 20170830
  Serious: Yes (Other)
  Sender: FDA-Public Use
  Company Number: US-MYLANLABS-2017M1025312

PATIENT

DRUGS (6)
  1. CARNITINE [Suspect]
     Active Substance: CARNITINE
     Dosage: 1500 MG TWICE/DAY
     Route: 048
  2. PROTONIX                           /00661201/ [Suspect]
     Active Substance: OMEPRAZOLE
     Indication: METHYLMALONIC ACIDURIA
     Route: 065
  3. CARNITINE [Suspect]
     Active Substance: CARNITINE
     Dosage: 25MG/KG/DOSES EVERY 6H
     Route: 042
  4. HYDROXOCOBALAMIN [Suspect]
     Active Substance: HYDROXOCOBALAMIN
     Indication: METHYLMALONIC ACIDURIA
     Route: 030
  5. SALBUTAMOL [Suspect]
     Active Substance: ALBUTEROL
     Indication: METHYLMALONIC ACIDURIA
     Route: 055
  6. CARNITINE [Suspect]
     Active Substance: CARNITINE
     Indication: METHYLMALONIC ACIDURIA
     Dosage: 50 MG/KG/DOSE EVERY 6 FOR 24H
     Route: 042

REACTIONS (6)
  - Premature separation of placenta [Recovered/Resolved]
  - Gestational diabetes [Unknown]
  - Premature delivery [Recovered/Resolved]
  - Pre-eclampsia [Unknown]
  - Maternal exposure during pregnancy [Recovered/Resolved]
  - Uterine scar [Unknown]
